FAERS Safety Report 10943891 (Version 1)
Quarter: 2015Q1

REPORT INFORMATION
  Report Type: Spontaneous
  Country: US (occurrence: US)
  Receive Date: 20150322
  Receipt Date: 20150322
  Transmission Date: 20150721
  Serious: No
  Sender: FDA-Public Use
  Company Number: US-009507513-1503USA010019

PATIENT
  Sex: Female

DRUGS (2)
  1. NUVARING [Suspect]
     Active Substance: ETHINYL ESTRADIOL\ETONOGESTREL
     Dosage: ^AS INDICATED IN THE PRESCRIBING INFORMATION^/RING IN THREE WEEKS, FOLLOWED BY A ONE-WEEK RING-FREE
     Route: 067
     Dates: start: 201411
  2. NUVARING [Suspect]
     Active Substance: ETHINYL ESTRADIOL\ETONOGESTREL
     Dosage: ^AS INDICATED IN THE PRESCRIBING INFORMATION^/RING IN THREE WEEKS, FOLLOWED BY A ONE-WEEK RING-FREE
     Route: 067

REACTIONS (3)
  - Product shape issue [Unknown]
  - Therapy cessation [Unknown]
  - No adverse event [Unknown]
